FAERS Safety Report 23921356 (Version 2)
Quarter: 2024Q3

REPORT INFORMATION
  Report Type: Spontaneous
  Country: US (occurrence: US)
  Receive Date: 20240530
  Receipt Date: 20240906
  Transmission Date: 20241017
  Serious: No
  Sender: LUNDBECK
  Company Number: US-LUNDBECK-DKLU3077507

PATIENT

DRUGS (12)
  1. VYEPTI [Suspect]
     Active Substance: EPTINEZUMAB-JJMR
     Indication: Migraine
     Dosage: 100 MILLIGRAM
     Route: 041
  2. VYEPTI [Suspect]
     Active Substance: EPTINEZUMAB-JJMR
     Dosage: 300 MILLIGRAM
     Route: 041
     Dates: start: 202404
  3. VYEPTI [Suspect]
     Active Substance: EPTINEZUMAB-JJMR
     Dosage: HAS BEEN TREATED WITH VYEPTI FOR A WHILE. LAST DOSE JUNE 26, 2024.
     Route: 041
  4. TOPIRAMATE [Concomitant]
     Active Substance: TOPIRAMATE
     Indication: Migraine
  5. DOXEPIN [Concomitant]
     Active Substance: DOXEPIN
  6. UBRELVY [Concomitant]
     Active Substance: UBROGEPANT
     Indication: Product used for unknown indication
  7. ELETRIPTAN [Concomitant]
     Active Substance: ELETRIPTAN
  8. METOPROLOL [Concomitant]
     Active Substance: METOPROLOL
  9. MIDODRINE [Concomitant]
     Active Substance: MIDODRINE
  10. GABAPENTIN [Concomitant]
     Active Substance: GABAPENTIN
  11. NAPROXEN [Concomitant]
     Active Substance: NAPROXEN
  12. PERCOCET [Concomitant]
     Active Substance: ACETAMINOPHEN\OXYCODONE HYDROCHLORIDE

REACTIONS (3)
  - Rotavirus infection [Recovered/Resolved]
  - Dehydration [Recovered/Resolved]
  - Migraine [Recovered/Resolved]

NARRATIVE: CASE EVENT DATE: 20240401
